FAERS Safety Report 9224710 (Version 1)
Quarter: 2013Q2

REPORT INFORMATION
  Report Type: Spontaneous
  Country: US (occurrence: None)
  Receive Date: 20130409
  Receipt Date: 20130409
  Transmission Date: 20140414
  Serious: Yes (Life-Threatening, Other)
  Sender: FDA-Public Use
  Company Number: 2013P1004410

PATIENT
  Age: 19 Year
  Sex: Female

DRUGS (4)
  1. FENTANYL [Suspect]
     Indication: ANALGESIC THERAPY
  2. MORPHINE [Suspect]
     Indication: INTRACRANIAL PRESSURE INCREASED
  3. PROPOFOL [Concomitant]
  4. 20% MANNITOL [Concomitant]

REACTIONS (3)
  - Pyrexia [None]
  - Intracranial pressure increased [None]
  - Tachycardia [None]
